FAERS Safety Report 5056542-1 (Version None)
Quarter: 2006Q3

REPORT INFORMATION
  Report Type: 
  Country: None (occurrence: None)
  Receive Date: 20060714
  Receipt Date: 20060629
  Transmission Date: 20061208
  Serious: Yes (Other)
  Sender: FDA-Public Use
  Company Number: 2006S1004663

PATIENT
  Age: 84 Year
  Sex: Female

DRUGS (8)
  1. FENTANYL TRANSDERMAL SYSTEM [Suspect]
     Indication: ABDOMINAL PAIN
     Dosage: 100 UG/HR; Q3D; TRANS
     Route: 062
     Dates: start: 20060217
  2. FENTANYL TRANSDERMAL SYSTEM [Suspect]
     Indication: BREAST CANCER METASTATIC
     Dosage: 100 UG/HR; Q3D; TRANS
     Route: 062
     Dates: start: 20060217
  3. WARFARIN SODIUM [Concomitant]
  4. CELEBREX [Concomitant]
  5. LOTENSIN HCT [Concomitant]
  6. FEMARA [Concomitant]
  7. SENNA [Concomitant]
  8. DOCUSATE [Concomitant]

REACTIONS (5)
  - ARTHRALGIA [None]
  - DRUG WITHDRAWAL SYNDROME [None]
  - INADEQUATE ANALGESIA [None]
  - MUSCLE SPASMS [None]
  - MYALGIA [None]
